FAERS Safety Report 5486981-6 (Version None)
Quarter: 2007Q4

REPORT INFORMATION
  Report Type: 
  Country: None (occurrence: None)
  Receive Date: 20071016
  Receipt Date: 20070821
  Transmission Date: 20080405
  Serious: Yes (Other)
  Sender: FDA-Public Use
  Company Number: US-PURDUE-USA_2007_0029023

PATIENT
  Age: 41 Year
  Sex: Male
  Weight: 113 kg

DRUGS (2)
  1. OXYCONTIN [Suspect]
     Indication: BACK PAIN
     Dosage: 30 MG, TID
     Dates: start: 19991101, end: 20010101
  2. OXYIR [Concomitant]
     Indication: BACK PAIN
     Dosage: 5 MG, TID

REACTIONS (19)
  - CEREBROVASCULAR ACCIDENT [None]
  - COMA [None]
  - CONSCIOUSNESS FLUCTUATING [None]
  - DEPRESSION [None]
  - DISORIENTATION [None]
  - DRUG ABUSER [None]
  - DRUG SCREEN POSITIVE [None]
  - DYSARTHRIA [None]
  - EAR PAIN [None]
  - ENCEPHALOMALACIA [None]
  - EXTRADURAL HAEMATOMA [None]
  - HAEMORRHAGE INTRACRANIAL [None]
  - HALLUCINATION, AUDITORY [None]
  - HEAD INJURY [None]
  - LACERATION [None]
  - PNEUMOCEPHALUS [None]
  - ROAD TRAFFIC ACCIDENT [None]
  - SKULL FRACTURE [None]
  - TRAUMATIC BRAIN INJURY [None]
